FAERS Safety Report 21821027 (Version 1)
Quarter: 2023Q1

REPORT INFORMATION
  Report Type: Spontaneous
  Country: CA (occurrence: CA)
  Receive Date: 20230105
  Receipt Date: 20230105
  Transmission Date: 20230417
  Serious: Yes (Disabling, Other)
  Sender: FDA-Public Use
  Company Number: CA-ORGANON-O2301CAN000074

PATIENT
  Age: 28 Year
  Sex: Female

DRUGS (1)
  1. MOMETASONE FUROATE [Suspect]
     Active Substance: MOMETASONE FUROATE
     Dosage: UNK, DOSAGE FORM: NOT SPECIFIED
     Route: 065

REACTIONS (16)
  - Alopecia [Unknown]
  - Amenorrhoea [Unknown]
  - Burning sensation [Unknown]
  - Dry eye [Unknown]
  - Epinephrine abnormal [Unknown]
  - Hypersensitivity [Unknown]
  - Hypoaesthesia [Unknown]
  - Hypohidrosis [Unknown]
  - Inflammation [Unknown]
  - Neuralgia [Unknown]
  - Pruritus [Unknown]
  - Skin atrophy [Unknown]
  - Skin exfoliation [Unknown]
  - Steroid withdrawal syndrome [Unknown]
  - Swelling [Unknown]
  - Temperature regulation disorder [Unknown]
